FAERS Safety Report 4273830-7 (Version None)
Quarter: 2004Q1

REPORT INFORMATION
  Report Type: 
  Country: None (occurrence: None)
  Receive Date: 20040120
  Receipt Date: 20031201
  Transmission Date: 20041129
  Serious: Yes (Other)
  Sender: FDA-Public Use
  Company Number: PHNU2003DE04250

PATIENT
  Age: 14 Year
  Sex: Female

DRUGS (1)
  1. DICLOFENAC SODIUM [Suspect]
     Indication: CONTUSION
     Dosage: 1 DF, ONCE/SINGLE
     Route: 048
     Dates: start: 20031201, end: 20031201

REACTIONS (6)
  - ABDOMINAL PAIN UPPER [None]
  - DYSPNOEA [None]
  - HYPERVENTILATION [None]
  - MENTAL DISORDER [None]
  - TETANY [None]
  - THROAT TIGHTNESS [None]
